FAERS Safety Report 6383201-5 (Version None)
Quarter: 2009Q3

REPORT INFORMATION
  Report Type: 
  Country: None (occurrence: None)
  Receive Date: 20090929
  Receipt Date: 20090915
  Transmission Date: 20100115
  Serious: Yes (Other)
  Sender: FDA-Public Use
  Company Number: DSA_41667_2009

PATIENT
  Age: 15 Year
  Sex: Female

DRUGS (1)
  1. APLENZIN [Suspect]
     Indication: DEPRESSION
     Dosage: 522 MG 4D)
     Dates: start: 20090101

REACTIONS (1)
  - LOSS OF CONSCIOUSNESS [None]
